FAERS Safety Report 10458765 (Version 1)
Quarter: 2014Q3

REPORT INFORMATION
  Report Type: Spontaneous
  Country: US (occurrence: None)
  Receive Date: 20140916
  Receipt Date: 20140916
  Transmission Date: 20150326
  Serious: Yes (Other)
  Sender: FDA-Public Use
  Company Number: None

PATIENT
  Age: 52 Year
  Sex: Female

DRUGS (1)
  1. HUMIRA [Suspect]
     Active Substance: ADALIMUMAB
     Indication: CROHN^S DISEASE
     Dosage: 40 MG EVERY OTHER WEEK SUBCUTANEOUSLY
     Route: 058

REACTIONS (4)
  - Musculoskeletal disorder [None]
  - Convulsion [None]
  - Fatigue [None]
  - Movement disorder [None]

NARRATIVE: CASE EVENT DATE: 20140805
